FAERS Safety Report 16399039 (Version 1)
Quarter: 2019Q2

REPORT INFORMATION
  Report Type: Spontaneous
  Country: JP (occurrence: JP)
  Receive Date: 20190606
  Receipt Date: 20190606
  Transmission Date: 20190711
  Serious: Yes (Other)
  Sender: FDA-Public Use
  Company Number: JP-BAUSCH-BL-2019-016201

PATIENT
  Age: 7 Year
  Sex: Female
  Weight: 31 kg

DRUGS (3)
  1. METHYLPREDNISOLONE. [Suspect]
     Active Substance: METHYLPREDNISOLONE
     Indication: GLOMERULONEPHRITIS
     Dosage: PULSE THERAPY
     Route: 042
  2. TELMISARTAN. [Concomitant]
     Active Substance: TELMISARTAN
     Indication: RENAL DISORDER PROPHYLAXIS
  3. PREDNISOLONE. [Suspect]
     Active Substance: PREDNISOLONE
     Indication: GLOMERULONEPHRITIS
     Route: 048

REACTIONS (1)
  - Drug resistance [Unknown]
